FAERS Safety Report 21724527 (Version 5)
Quarter: 2024Q1

REPORT INFORMATION
  Report Type: Report from Study
  Country: US (occurrence: US)
  Receive Date: 20221213
  Receipt Date: 20240308
  Transmission Date: 20240409
  Serious: Yes (Other)
  Sender: FDA-Public Use
  Company Number: US-ABBVIE-4233950

PATIENT
  Age: 70 Year
  Sex: Male

DRUGS (5)
  1. IMBRUVICA [Suspect]
     Active Substance: IBRUTINIB
     Indication: Hypomagnesaemia
     Route: 048
     Dates: start: 20220728
  2. IMBRUVICA [Suspect]
     Active Substance: IBRUTINIB
     Indication: Hypomagnesaemia
     Route: 048
  3. IMBRUVICA [Suspect]
     Active Substance: IBRUTINIB
     Indication: Hypomagnesaemia
     Route: 048
     Dates: start: 20220728
  4. IMBRUVICA [Suspect]
     Active Substance: IBRUTINIB
     Indication: Hypomagnesaemia
     Route: 048
     Dates: start: 20220728
  5. BACLOFEN [Concomitant]
     Active Substance: BACLOFEN
     Indication: Product used for unknown indication

REACTIONS (13)
  - Limb operation [Unknown]
  - Blood urea increased [Unknown]
  - Blood calcium decreased [Unknown]
  - Blood glucose increased [Unknown]
  - Rash [Unknown]
  - Pulmonary mass [Not Recovered/Not Resolved]
  - Haemoglobin decreased [Unknown]
  - Muscle spasms [Not Recovered/Not Resolved]
  - Hypertension [Unknown]
  - Contusion [Not Recovered/Not Resolved]
  - Constipation [Unknown]
  - Dehydration [Unknown]
  - Glycosylated haemoglobin abnormal [Unknown]

NARRATIVE: CASE EVENT DATE: 20221001
